FAERS Safety Report 24294548 (Version 1)
Quarter: 2024Q3

REPORT INFORMATION
  Report Type: Spontaneous
  Country: CN (occurrence: CN)
  Receive Date: 20240906
  Receipt Date: 20240906
  Transmission Date: 20241017
  Serious: Yes (Hospitalization, Other)
  Sender: ELI LILLY AND CO
  Company Number: CN-ELI_LILLY_AND_COMPANY-CN202408017503

PATIENT
  Age: 69 Year
  Sex: Male
  Weight: 60 kg

DRUGS (2)
  1. RAMUCIRUMAB [Suspect]
     Active Substance: RAMUCIRUMAB
     Indication: Neoplasm
     Dosage: 1000 MG, CYCLICAL (ONCE IN 14 DAYS)
     Route: 041
     Dates: start: 20240601, end: 20240730
  2. SERPLULIMAB [Suspect]
     Active Substance: SERPLULIMAB
     Indication: Neoplasm
     Dosage: 200 MG, CYCLICAL (ONCE IN 21 DAYS)
     Route: 041
     Dates: start: 20230801, end: 20240801

REACTIONS (8)
  - Adrenal insufficiency [Recovering/Resolving]
  - Pneumonia [Recovering/Resolving]
  - Hypothyroidism [Recovering/Resolving]
  - Hyponatraemia [Recovering/Resolving]
  - Splenomegaly [Recovering/Resolving]
  - Effusion [Recovering/Resolving]
  - Anaemia [Recovering/Resolving]
  - Platelet count decreased [Recovering/Resolving]

NARRATIVE: CASE EVENT DATE: 20240818
